FAERS Safety Report 18845434 (Version 3)
Quarter: 2022Q1

REPORT INFORMATION
  Report Type: Spontaneous
  Country: US (occurrence: US)
  Receive Date: 20210204
  Receipt Date: 20220308
  Transmission Date: 20220424
  Serious: No
  Sender: FDA-Public Use
  Company Number: US-PFIZER INC-2018099656

PATIENT
  Age: 64 Year
  Sex: Female

DRUGS (5)
  1. SOMATROPIN [Suspect]
     Active Substance: SOMATROPIN
     Dosage: 0.4 MG, 1X/DAY
  2. SOMATROPIN [Suspect]
     Active Substance: SOMATROPIN
     Dosage: 0.4 MG, (THREE DAYS A WEEK)
     Dates: start: 2017
  3. SOMATROPIN [Suspect]
     Active Substance: SOMATROPIN
     Dosage: 0.4 MG (THREE TIMES PER WEEK )
     Dates: start: 200105
  4. SOMATROPIN [Suspect]
     Active Substance: SOMATROPIN
     Dosage: 0.25 MG, DAILY
  5. SOMATROPIN [Suspect]
     Active Substance: SOMATROPIN
     Dosage: 0.4 MG, DAILY

REACTIONS (4)
  - Haemangioma [Unknown]
  - Haemangioma of liver [Unknown]
  - Intentional product misuse [Unknown]
  - Product prescribing error [Unknown]

NARRATIVE: CASE EVENT DATE: 20170101
